FAERS Safety Report 19497003 (Version 1)
Quarter: 2021Q3

REPORT INFORMATION
  Report Type: Spontaneous
  Country: US (occurrence: US)
  Receive Date: 20210705
  Receipt Date: 20210705
  Transmission Date: 20211014
  Serious: Yes (Hospitalization, Disabling, Other)
  Sender: FDA-Public Use
  Company Number: None

PATIENT
  Age: 87 Year
  Sex: Female
  Weight: 62.55 kg

DRUGS (15)
  1. SIMVASTATIN. [Concomitant]
     Active Substance: SIMVASTATIN
  2. LUTEIN [Concomitant]
     Active Substance: LUTEIN
  3. PROLIA [Concomitant]
     Active Substance: DENOSUMAB
  4. KRILL OIL [Concomitant]
     Active Substance: DIETARY SUPPLEMENT\KRILL OIL
  5. METOPROLOL. [Concomitant]
     Active Substance: METOPROLOL
  6. LISINOPRIL. [Concomitant]
     Active Substance: LISINOPRIL
  7. METRONIDAZOLE. [Concomitant]
     Active Substance: METRONIDAZOLE
  8. COENZYME Q10 [Concomitant]
     Active Substance: DIETARY SUPPLEMENT\UBIDECARENONE
  9. OMEPRAZOLE. [Concomitant]
     Active Substance: OMEPRAZOLE
  10. TERAZOSIN [Suspect]
     Active Substance: TERAZOSIN HYDROCHLORIDE
     Indication: HYPERTENSION
     Dosage: ?          QUANTITY:1 CAPSULE(S);?
     Route: 048
     Dates: start: 20210623, end: 20210629
  11. MELATONIN [Concomitant]
     Active Substance: MELATONIN
  12. CALCIUM +D [Concomitant]
     Active Substance: CALCIUM\VITAMIN D
  13. CIPROFLOXACIN. [Concomitant]
     Active Substance: CIPROFLOXACIN
  14. SYMBICORT [Concomitant]
     Active Substance: BUDESONIDE\FORMOTEROL FUMARATE DIHYDRATE
  15. FOLIC ACID. [Concomitant]
     Active Substance: FOLIC ACID

REACTIONS (6)
  - Loss of consciousness [None]
  - Vision blurred [None]
  - Dizziness [None]
  - Asthenia [None]
  - Rectal haemorrhage [None]
  - Abdominal pain [None]

NARRATIVE: CASE EVENT DATE: 20210629
